FAERS Safety Report 13993399 (Version 1)
Quarter: 2017Q3

REPORT INFORMATION
  Report Type: Report from Study
  Country: BR (occurrence: BR)
  Receive Date: 20170920
  Receipt Date: 20170920
  Transmission Date: 20171128
  Serious: Yes (Other)
  Sender: FDA-Public Use
  Company Number: BR-BAYER-2017-006676

PATIENT
  Age: 65 Year
  Sex: Male

DRUGS (3)
  1. NEXAVAR [Suspect]
     Active Substance: SORAFENIB
     Indication: MYELOID LEUKAEMIA
     Dosage: 400 MG, BID
     Route: 048
     Dates: start: 20170113, end: 2017
  2. VIDAZA [Concomitant]
     Active Substance: AZACITIDINE
     Indication: MYELOID LEUKAEMIA
     Dosage: 7 CONSECUTIVE DAYS PER MONTH
     Route: 058
  3. NEXAVAR [Suspect]
     Active Substance: SORAFENIB
     Indication: MYELOID LEUKAEMIA
     Dosage: 200 MG, BID
     Route: 048
     Dates: start: 2017, end: 201704

REACTIONS (15)
  - Drug-induced liver injury [None]
  - Off label use [Unknown]
  - Product use in unapproved indication [Unknown]
  - Bone pain [Not Recovered/Not Resolved]
  - Malaise [Recovered/Resolved]
  - Arthralgia [Not Recovered/Not Resolved]
  - Dysphonia [Not Recovered/Not Resolved]
  - Fatigue [Not Recovered/Not Resolved]
  - Asthenia [None]
  - Splenomegaly [Not Recovered/Not Resolved]
  - Pain in extremity [Not Recovered/Not Resolved]
  - Gait inability [None]
  - Pruritus [Not Recovered/Not Resolved]
  - Somnolence [None]
  - Hepatomegaly [Recovered/Resolved]

NARRATIVE: CASE EVENT DATE: 2017
